FAERS Safety Report 24120610 (Version 1)
Quarter: 2024Q3

REPORT INFORMATION
  Report Type: Spontaneous
  Country: GB (occurrence: GB)
  Receive Date: 20240722
  Receipt Date: 20240722
  Transmission Date: 20241017
  Serious: Yes (Hospitalization, Disabling, Other)
  Sender: MYLAN
  Company Number: None

PATIENT
  Age: 50 Year
  Sex: Male
  Weight: 98 kg

DRUGS (2)
  1. CIPROFLOXACIN [Suspect]
     Active Substance: CIPROFLOXACIN
     Indication: Epididymitis
     Dosage: 200 MILLIGRAM, BID (TWICE DAILY )
     Route: 065
     Dates: start: 20240430, end: 20240505
  2. BETNOVATE [Concomitant]
     Active Substance: BETAMETHASONE
     Indication: Psoriasis
     Dosage: UNK
     Route: 065
     Dates: start: 20230411, end: 20240505

REACTIONS (9)
  - Neuralgia [Not Recovered/Not Resolved]
  - Flushing [Not Recovered/Not Resolved]
  - Muscle spasms [Not Recovered/Not Resolved]
  - Fatigue [Not Recovered/Not Resolved]
  - Tendon pain [Not Recovered/Not Resolved]
  - Paraesthesia [Not Recovered/Not Resolved]
  - Headache [Not Recovered/Not Resolved]
  - Arthralgia [Not Recovered/Not Resolved]
  - Medication error [Unknown]

NARRATIVE: CASE EVENT DATE: 20240503
